FAERS Safety Report 6416199-1 (Version None)
Quarter: 2009Q4

REPORT INFORMATION
  Report Type: 
  Country: None (occurrence: None)
  Receive Date: 20091027
  Receipt Date: 20091019
  Transmission Date: 20100525
  Serious: Yes (Hospitalization, Other)
  Sender: FDA-Public Use
  Company Number: AU-PFIZER INC-2009264717

PATIENT

DRUGS (4)
  1. CELEBREX [Suspect]
     Dosage: 200 MG, AS NEEDED
  2. LYRICA [Suspect]
     Dosage: 150MG IN MORNING, 300MG AT NIGHT
  3. OXYCONTIN [Suspect]
  4. RAMIPRIL [Concomitant]

REACTIONS (3)
  - FALL [None]
  - RENAL FAILURE ACUTE [None]
  - SEDATION [None]
